FAERS Safety Report 14659112 (Version 2)
Quarter: 2018Q2

REPORT INFORMATION
  Report Type: Spontaneous
  Country: DK (occurrence: DK)
  Receive Date: 20180320
  Receipt Date: 20180420
  Transmission Date: 20180711
  Serious: Yes (Other)
  Sender: FDA-Public Use
  Company Number: DK-PFIZER INC-2018106420

PATIENT
  Sex: Male

DRUGS (5)
  1. FOLINIC ACID [Suspect]
     Active Substance: LEUCOVORIN
     Indication: RECTAL CANCER METASTATIC
     Dosage: UNK
     Dates: start: 2013
  2. AVASTIN /00848101/ [Suspect]
     Active Substance: SIMVASTATIN
     Indication: RECTAL CANCER METASTATIC
     Dosage: UNK
     Dates: start: 2016
  3. IRINOTECAN HCL [Suspect]
     Active Substance: IRINOTECAN HYDROCHLORIDE
     Indication: RECTAL CANCER METASTATIC
     Dosage: UNK
     Dates: start: 2013
  4. FLUOROURACIL. [Suspect]
     Active Substance: FLUOROURACIL
     Indication: RECTAL CANCER METASTATIC
     Dosage: UNK
     Dates: start: 2013
  5. XELODA [Suspect]
     Active Substance: CAPECITABINE
     Indication: RECTAL CANCER METASTATIC
     Dosage: UNK
     Dates: start: 2013

REACTIONS (10)
  - Nausea [Recovered/Resolved]
  - Pain [Recovered/Resolved]
  - Off label use [Unknown]
  - Infusion site extravasation [Unknown]
  - Alopecia [Recovered/Resolved]
  - Temperature intolerance [Recovered/Resolved]
  - Joint range of motion decreased [Recovered/Resolved]
  - Throat tightness [Recovered/Resolved]
  - Muscle rupture [Recovered/Resolved]
  - Drug administration error [Unknown]
